FAERS Safety Report 7741030-1 (Version None)
Quarter: 2011Q3

REPORT INFORMATION
  Report Type: 
  Country: None (occurrence: None)
  Receive Date: 20110909
  Receipt Date: 20110829
  Transmission Date: 20111222
  Serious: No
  Sender: FDA-Public Use
  Company Number: US-BAYER-2011-079615

PATIENT
  Age: 56 Year
  Sex: Male

DRUGS (2)
  1. ULTRAVIST 150 [Suspect]
     Indication: ANGIOGRAM
     Dosage: 100 ML, ONCE
     Route: 042
     Dates: start: 20110829, end: 20110829
  2. ULTRAVIST 150 [Suspect]
     Indication: PULMONARY EMBOLISM

REACTIONS (2)
  - PRURITUS [None]
  - URTICARIA [None]
